FAERS Safety Report 17569478 (Version 1)
Quarter: 2020Q1

REPORT INFORMATION
  Report Type: Report from Study
  Country: None (occurrence: US)
  Receive Date: 20200323
  Receipt Date: 20200323
  Transmission Date: 20200409
  Serious: Yes (Other)
  Sender: FDA-Public Use
  Company Number: US-ABBVIE-20K-163-3331271-00

PATIENT
  Age: 77 Year
  Sex: Male

DRUGS (2)
  1. DUOPA [Suspect]
     Active Substance: CARBIDOPA\LEVODOPA
     Indication: PARKINSON^S DISEASE
     Route: 050
     Dates: start: 20190401, end: 202002
  2. CARBIDOPA LEVODOPA [Concomitant]
     Active Substance: CARBIDOPA\LEVODOPA
     Indication: PARKINSON^S DISEASE

REACTIONS (3)
  - Hospice care [Unknown]
  - Unintentional medical device removal [Unknown]
  - Agitation [Unknown]

NARRATIVE: CASE EVENT DATE: 202002
